FAERS Safety Report 16739353 (Version 1)
Quarter: 2019Q3

REPORT INFORMATION
  Report Type: Report from Study
  Country: None (occurrence: US)
  Receive Date: 20190826
  Receipt Date: 20190826
  Transmission Date: 20191005
  Serious: Yes (Hospitalization)
  Sender: FDA-Public Use
  Company Number: US-ABBVIE-19K-163-2900105-00

PATIENT
  Sex: Female

DRUGS (1)
  1. HUMIRA [Suspect]
     Active Substance: ADALIMUMAB
     Indication: COLITIS ULCERATIVE
     Dosage: ON HUMIRA ABOUT 3 YEARS
     Route: 058

REACTIONS (4)
  - Gastrointestinal candidiasis [Unknown]
  - Paradoxical drug reaction [Unknown]
  - Atrial fibrillation [Unknown]
  - Candida infection [Unknown]

NARRATIVE: CASE EVENT DATE: 2018
